FAERS Safety Report 21511502 (Version 1)
Quarter: 2022Q4

REPORT INFORMATION
  Report Type: Spontaneous
  Country: JP (occurrence: None)
  Receive Date: 20221027
  Receipt Date: 20221027
  Transmission Date: 20230112
  Serious: Yes (Other)
  Sender: FDA-Public Use
  Company Number: JP-Merck Healthcare KGaA-9359294

PATIENT
  Age: 27 Year
  Sex: Female

DRUGS (2)
  1. GONAL-F [Suspect]
     Active Substance: FOLLITROPIN
     Indication: Product used for unknown indication
     Dosage: GONAL-F 150 (UNITS UNSPECIFIED)
     Route: 058
     Dates: start: 202104, end: 202104
  2. GONAL-F [Suspect]
     Active Substance: FOLLITROPIN
     Dosage: GONAL-F 75 (UNITS UNSPECIFIED)
     Route: 058
     Dates: start: 202104, end: 202104

REACTIONS (1)
  - Ovarian hyperstimulation syndrome [Unknown]
